FAERS Safety Report 8302968-X (Version None)
Quarter: 2012Q2

REPORT INFORMATION
  Report Type: 
  Country: None (occurrence: None)
  Receive Date: 20120420
  Receipt Date: 20120416
  Transmission Date: 20120825
  Serious: Yes (Hospitalization)
  Sender: FDA-Public Use
  Company Number: GB-PFIZER INC-2011271502

PATIENT
  Age: 63 Year
  Sex: Female

DRUGS (2)
  1. SIMVASTATIN [Concomitant]
     Dosage: 40 MG, 1X/DAY
     Dates: start: 20110705
  2. IBUPROFEN [Suspect]
     Indication: OSTEOARTHRITIS
     Dosage: 400 MG, 1 X EVERY 2 DAYS
     Route: 048
     Dates: start: 20080505, end: 20110628

REACTIONS (4)
  - HEMIPARESIS [None]
  - VIITH NERVE PARALYSIS [None]
  - DYSARTHRIA [None]
  - CEREBROVASCULAR ACCIDENT [None]
